FAERS Safety Report 7609041-4 (Version None)
Quarter: 2011Q3

REPORT INFORMATION
  Report Type: 
  Country: None (occurrence: None)
  Receive Date: 20110706
  Receipt Date: 20110621
  Transmission Date: 20111222
  Serious: Yes (Disabling)
  Sender: FDA-Public Use
  Company Number: 2011P1007307

PATIENT
  Age: 56 Year
  Sex: Male
  Weight: 84.369 kg

DRUGS (5)
  1. RESPIROL [Concomitant]
  2. ^MEPARAL^ [Concomitant]
  3. MELOXICAM [Concomitant]
  4. LAMOTRIGINE [Suspect]
     Indication: EPILEPSY
     Dosage: 400 MG;BID;PO
     Route: 048
     Dates: start: 20110531, end: 20110614
  5. DILANTIN [Concomitant]

REACTIONS (5)
  - ABNORMAL DREAMS [None]
  - FEELING ABNORMAL [None]
  - PRODUCT SUBSTITUTION ISSUE [None]
  - ERECTILE DYSFUNCTION [None]
  - FATIGUE [None]
